FAERS Safety Report 25621616 (Version 1)
Quarter: 2025Q3

REPORT INFORMATION
  Report Type: Spontaneous
  Country: US (occurrence: US)
  Receive Date: 20250730
  Receipt Date: 20250730
  Transmission Date: 20251021
  Serious: Yes (Hospitalization)
  Sender: AMGEN
  Company Number: US-AMGEN-USASP2025146645

PATIENT
  Sex: Male

DRUGS (2)
  1. RIABNI [Suspect]
     Active Substance: RITUXIMAB-ARRX
     Indication: Autoimmune haemolytic anaemia
     Dosage: 800 MILLIGRAM, QWK  (4 DOSES)
     Route: 065
     Dates: start: 20250630
  2. RIABNI [Suspect]
     Active Substance: RITUXIMAB-ARRX
     Dosage: 800 MILLIGRAM, QWK  (4 DOSES)
     Route: 065

REACTIONS (4)
  - Anal incontinence [Unknown]
  - Hypotension [Unknown]
  - Haemoglobin decreased [Unknown]
  - Platelet count decreased [Unknown]
